FAERS Safety Report 8311211-7 (Version None)
Quarter: 2012Q2

REPORT INFORMATION
  Report Type: 
  Country: None (occurrence: None)
  Receive Date: 20120425
  Receipt Date: 20120418
  Transmission Date: 20120825
  Serious: Yes (Hospitalization)
  Sender: FDA-Public Use
  Company Number: US-ASTRAZENECA-2012SE25623

PATIENT
  Age: 54 Year
  Sex: Female

DRUGS (1)
  1. SYMBICORT [Suspect]
     Route: 055

REACTIONS (4)
  - MEMORY IMPAIRMENT [None]
  - MALAISE [None]
  - HEADACHE [None]
  - CONFUSIONAL STATE [None]
